FAERS Safety Report 7883631-6 (Version None)
Quarter: 2011Q4

REPORT INFORMATION
  Report Type: 
  Country: None (occurrence: None)
  Receive Date: 20111031
  Receipt Date: 20111019
  Transmission Date: 20120403
  Serious: Yes (Hospitalization)
  Sender: FDA-Public Use
  Company Number: 2011MA015426

PATIENT
  Age: 75 Year
  Sex: Female

DRUGS (12)
  1. AMOXICILLIN [Suspect]
     Indication: LOWER RESPIRATORY TRACT INFECTION
     Dosage: 250 MG;TID
     Dates: start: 20110930, end: 20111002
  2. COSOPT [Concomitant]
  3. LORATADINE [Concomitant]
  4. IRBESARTAN [Suspect]
     Indication: HYPERTENSION
     Dosage: 150 MG;QD;PO
     Route: 048
     Dates: start: 20100913, end: 20111002
  5. CITALOPRAM HYDROBROMIDE [Concomitant]
  6. CLOPIDOGREL [Concomitant]
  7. MOVIPREP [Concomitant]
  8. TRAMADOL HYDROCHLORIDE/ACETAMINOPHEN [Concomitant]
  9. LATANOPROST [Concomitant]
  10. RISPERIDONE [Suspect]
     Indication: AGITATION
     Dosage: 1 MG;BID;PO
     Route: 048
     Dates: start: 20110929, end: 20111002
  11. BENDROFLUMETHIAZIDE [Concomitant]
  12. CHLORPHENIRAMINE MALEATE [Concomitant]

REACTIONS (1)
  - SWOLLEN TONGUE [None]
